FAERS Safety Report 23546632 (Version 3)
Quarter: 2025Q2

REPORT INFORMATION
  Report Type: Spontaneous
  Country: CA (occurrence: CA)
  Receive Date: 20240221
  Receipt Date: 20250616
  Transmission Date: 20250716
  Serious: Yes (Death, Life-Threatening, Hospitalization, Disabling, Congenital Anomaly, Other)
  Sender: Haleon PLC
  Company Number: CA-002147023-NVSC2024CA031690

PATIENT
  Age: 40 Year
  Sex: Female

DRUGS (493)
  1. DICLOFENAC SODIUM [Suspect]
     Active Substance: DICLOFENAC SODIUM
     Indication: Product used for unknown indication
  2. DICLOFENAC SODIUM [Suspect]
     Active Substance: DICLOFENAC SODIUM
  3. DICLOFENAC SODIUM [Suspect]
     Active Substance: DICLOFENAC SODIUM
     Route: 058
  4. DICLOFENAC SODIUM [Suspect]
     Active Substance: DICLOFENAC SODIUM
  5. XELJANZ [Suspect]
     Active Substance: TOFACITINIB CITRATE
     Indication: Rheumatoid arthritis
  6. MINOCIN [Suspect]
     Active Substance: MINOCYCLINE HYDROCHLORIDE
     Indication: Rheumatoid arthritis
  7. CIMZIA [Suspect]
     Active Substance: CERTOLIZUMAB PEGOL
     Indication: Rheumatoid arthritis
     Route: 058
  8. CIMZIA [Suspect]
     Active Substance: CERTOLIZUMAB PEGOL
     Indication: Psoriasis
  9. CIMZIA [Suspect]
     Active Substance: CERTOLIZUMAB PEGOL
     Route: 058
  10. CIMZIA [Suspect]
     Active Substance: CERTOLIZUMAB PEGOL
  11. CIMZIA [Suspect]
     Active Substance: CERTOLIZUMAB PEGOL
  12. CIMZIA [Suspect]
     Active Substance: CERTOLIZUMAB PEGOL
     Route: 058
  13. CIMZIA [Suspect]
     Active Substance: CERTOLIZUMAB PEGOL
  14. DOMPERIDONE MALEATE [Suspect]
     Active Substance: DOMPERIDONE MALEATE
     Indication: Product used for unknown indication
  15. CANDESARTAN [Suspect]
     Active Substance: CANDESARTAN
     Indication: Migraine
     Route: 048
  16. DICLOFENAC SODIUM [Suspect]
     Active Substance: DICLOFENAC SODIUM
     Indication: Product used for unknown indication
  17. LEFLUNOMIDE [Suspect]
     Active Substance: LEFLUNOMIDE
     Indication: Rheumatoid arthritis
     Route: 048
  18. LEFLUNOMIDE [Suspect]
     Active Substance: LEFLUNOMIDE
     Route: 048
  19. LEFLUNOMIDE [Suspect]
     Active Substance: LEFLUNOMIDE
     Route: 048
  20. ACTEMRA [Suspect]
     Active Substance: TOCILIZUMAB
     Indication: Rheumatoid arthritis
  21. ACTEMRA [Suspect]
     Active Substance: TOCILIZUMAB
  22. ACTEMRA [Suspect]
     Active Substance: TOCILIZUMAB
     Route: 058
  23. ACTEMRA [Suspect]
     Active Substance: TOCILIZUMAB
     Route: 016
  24. ACTEMRA [Suspect]
     Active Substance: TOCILIZUMAB
     Route: 058
  25. ACTEMRA [Suspect]
     Active Substance: TOCILIZUMAB
     Dosage: 25 MG, WE (QW), SOLUTION FOR INJECTION IN PRE-FILLED SYRINGE
     Route: 058
  26. ACTEMRA [Suspect]
     Active Substance: TOCILIZUMAB
     Route: 058
  27. ACTEMRA [Suspect]
     Active Substance: TOCILIZUMAB
  28. ACTEMRA [Suspect]
     Active Substance: TOCILIZUMAB
     Route: 042
  29. ACTEMRA [Suspect]
     Active Substance: TOCILIZUMAB
  30. ACTEMRA [Suspect]
     Active Substance: TOCILIZUMAB
     Route: 042
  31. ACTEMRA [Suspect]
     Active Substance: TOCILIZUMAB
  32. ACTEMRA [Suspect]
     Active Substance: TOCILIZUMAB
  33. ACTEMRA [Suspect]
     Active Substance: TOCILIZUMAB
     Route: 058
  34. ACTEMRA [Suspect]
     Active Substance: TOCILIZUMAB
  35. ACTEMRA [Suspect]
     Active Substance: TOCILIZUMAB
  36. ACTEMRA [Suspect]
     Active Substance: TOCILIZUMAB
     Route: 058
  37. ACTEMRA [Suspect]
     Active Substance: TOCILIZUMAB
  38. ACTEMRA [Suspect]
     Active Substance: TOCILIZUMAB
     Route: 058
  39. ACTEMRA [Suspect]
     Active Substance: TOCILIZUMAB
  40. SIMPONI [Suspect]
     Active Substance: GOLIMUMAB
     Indication: Rheumatoid arthritis
     Route: 058
  41. SIMPONI [Suspect]
     Active Substance: GOLIMUMAB
  42. SIMPONI [Suspect]
     Active Substance: GOLIMUMAB
  43. SIMPONI [Suspect]
     Active Substance: GOLIMUMAB
  44. SIMPONI [Suspect]
     Active Substance: GOLIMUMAB
     Route: 058
  45. CIMZIA [Suspect]
     Active Substance: CERTOLIZUMAB PEGOL
     Indication: Rheumatoid arthritis
     Route: 058
  46. CIMZIA [Suspect]
     Active Substance: CERTOLIZUMAB PEGOL
     Indication: Psoriasis
  47. ORENCIA [Suspect]
     Active Substance: ABATACEPT
     Indication: Rheumatoid arthritis
     Route: 058
  48. ORENCIA [Suspect]
     Active Substance: ABATACEPT
  49. ORENCIA [Suspect]
     Active Substance: ABATACEPT
  50. ORENCIA [Suspect]
     Active Substance: ABATACEPT
  51. ORENCIA [Suspect]
     Active Substance: ABATACEPT
  52. ORENCIA [Suspect]
     Active Substance: ABATACEPT
  53. ORENCIA [Suspect]
     Active Substance: ABATACEPT
     Dosage: 125 MG, WE (QW)
  54. ORENCIA [Suspect]
     Active Substance: ABATACEPT
  55. ORENCIA [Suspect]
     Active Substance: ABATACEPT
  56. ORENCIA [Suspect]
     Active Substance: ABATACEPT
  57. ORENCIA [Suspect]
     Active Substance: ABATACEPT
  58. ORENCIA [Suspect]
     Active Substance: ABATACEPT
  59. RITUXIMAB [Suspect]
     Active Substance: RITUXIMAB
     Indication: Rheumatoid arthritis
     Route: 058
  60. RITUXIMAB [Suspect]
     Active Substance: RITUXIMAB
     Dosage: 2000 MG, QD (1000 MG, BID (5.0 MONTHS) )
  61. RITUXIMAB [Suspect]
     Active Substance: RITUXIMAB
  62. RITUXIMAB [Suspect]
     Active Substance: RITUXIMAB
  63. RITUXIMAB [Suspect]
     Active Substance: RITUXIMAB
     Route: 043
  64. RITUXIMAB [Suspect]
     Active Substance: RITUXIMAB
     Route: 016
  65. RITUXIMAB [Suspect]
     Active Substance: RITUXIMAB
     Dosage: 2 G, QD (1 G, BID),INTRAVENOUS BOLUS
  66. RITUXIMAB [Suspect]
     Active Substance: RITUXIMAB
     Route: 016
  67. RITUXIMAB [Suspect]
     Active Substance: RITUXIMAB
     Route: 016
  68. RITUXIMAB [Suspect]
     Active Substance: RITUXIMAB
  69. RITUXIMAB [Suspect]
     Active Substance: RITUXIMAB
     Dosage: 2000 MG, QD (1000 MG, BID),INTRAVENOUS BOLUS
  70. RITUXIMAB [Suspect]
     Active Substance: RITUXIMAB
     Dosage: 2000 MG, QD,INTRAVENOUS BOLUS
  71. RITUXIMAB [Suspect]
     Active Substance: RITUXIMAB
     Route: 043
  72. RITUXIMAB [Suspect]
     Active Substance: RITUXIMAB
     Route: 058
  73. RITUXIMAB [Suspect]
     Active Substance: RITUXIMAB
     Route: 043
  74. RITUXIMAB [Suspect]
     Active Substance: RITUXIMAB
     Dosage: 2000 MG, QD (5.0 MONTHS)
  75. RITUXIMAB [Suspect]
     Active Substance: RITUXIMAB
     Route: 042
  76. OXYCODONE [Suspect]
     Active Substance: OXYCODONE
     Indication: Product used for unknown indication
  77. ACETAMINOPHEN [Suspect]
     Active Substance: ACETAMINOPHEN
     Indication: Rheumatoid arthritis
  78. ACETAMINOPHEN [Suspect]
     Active Substance: ACETAMINOPHEN
  79. ACETAMINOPHEN [Suspect]
     Active Substance: ACETAMINOPHEN
  80. ACETAMINOPHEN [Suspect]
     Active Substance: ACETAMINOPHEN
  81. ERELZI [Suspect]
     Active Substance: ETANERCEPT-SZZS
     Indication: Rheumatoid arthritis
     Route: 058
  82. ERELZI [Suspect]
     Active Substance: ETANERCEPT-SZZS
  83. TUMS [Suspect]
     Active Substance: CALCIUM CARBONATE
     Indication: Product used for unknown indication
  84. FOLIC ACID [Suspect]
     Active Substance: FOLIC ACID
     Indication: Rheumatoid arthritis
  85. GOLIMUMAB [Suspect]
     Active Substance: GOLIMUMAB
     Indication: Prostatic specific antigen
  86. GOLIMUMAB [Suspect]
     Active Substance: GOLIMUMAB
     Indication: Rheumatoid arthritis
  87. GOLIMUMAB [Suspect]
     Active Substance: GOLIMUMAB
     Route: 058
  88. VITAMIN C [Suspect]
     Active Substance: ASCORBIC ACID
     Indication: Product used for unknown indication
  89. DICLOFENAC DIETHYLAMINE [Suspect]
     Active Substance: DICLOFENAC DIETHYLAMINE
     Indication: Product used for unknown indication
  90. TOFACITINIB CITRATE [Suspect]
     Active Substance: TOFACITINIB CITRATE
     Indication: Rheumatoid arthritis
     Dosage: 10 MG, QD
     Route: 048
  91. TOFACITINIB CITRATE [Suspect]
     Active Substance: TOFACITINIB CITRATE
     Dosage: 10 MG, QD (5 MG, BID)
  92. PHTHALYLSULFATHIAZOLE [Suspect]
     Active Substance: PHTHALYLSULFATHIAZOLE
     Indication: Rheumatoid arthritis
  93. PHTHALYLSULFATHIAZOLE [Suspect]
     Active Substance: PHTHALYLSULFATHIAZOLE
     Route: 048
  94. PHTHALYLSULFATHIAZOLE [Suspect]
     Active Substance: PHTHALYLSULFATHIAZOLE
  95. PHTHALYLSULFATHIAZOLE [Suspect]
     Active Substance: PHTHALYLSULFATHIAZOLE
  96. PHTHALYLSULFATHIAZOLE [Suspect]
     Active Substance: PHTHALYLSULFATHIAZOLE
     Dosage: 2000 MG, QD (1000 MG, BID)
     Route: 048
  97. PHTHALYLSULFATHIAZOLE [Suspect]
     Active Substance: PHTHALYLSULFATHIAZOLE
     Route: 058
  98. PHTHALYLSULFATHIAZOLE [Suspect]
     Active Substance: PHTHALYLSULFATHIAZOLE
  99. PHTHALYLSULFATHIAZOLE [Suspect]
     Active Substance: PHTHALYLSULFATHIAZOLE
  100. PHTHALYLSULFATHIAZOLE [Suspect]
     Active Substance: PHTHALYLSULFATHIAZOLE
  101. MYRBETRIQ [Suspect]
     Active Substance: MIRABEGRON
     Indication: Product used for unknown indication
  102. MYRBETRIQ [Suspect]
     Active Substance: MIRABEGRON
     Dosage: 1 DF (DOSAGE FORM), QD (EXTENDED- RELEASE)
  103. MYRBETRIQ [Suspect]
     Active Substance: MIRABEGRON
  104. CETIRIZINE HYDROCHLORIDE [Suspect]
     Active Substance: CETIRIZINE HYDROCHLORIDE
     Indication: Rheumatoid arthritis
     Route: 048
  105. CETIRIZINE HYDROCHLORIDE [Suspect]
     Active Substance: CETIRIZINE HYDROCHLORIDE
  106. CETIRIZINE HYDROCHLORIDE [Suspect]
     Active Substance: CETIRIZINE HYDROCHLORIDE
  107. CETIRIZINE HYDROCHLORIDE [Suspect]
     Active Substance: CETIRIZINE HYDROCHLORIDE
  108. CETIRIZINE HYDROCHLORIDE [Suspect]
     Active Substance: CETIRIZINE HYDROCHLORIDE
  109. CETIRIZINE HYDROCHLORIDE [Suspect]
     Active Substance: CETIRIZINE HYDROCHLORIDE
  110. CETIRIZINE HYDROCHLORIDE [Suspect]
     Active Substance: CETIRIZINE HYDROCHLORIDE
  111. CETIRIZINE HYDROCHLORIDE [Suspect]
     Active Substance: CETIRIZINE HYDROCHLORIDE
     Route: 048
  112. CETIRIZINE HYDROCHLORIDE [Suspect]
     Active Substance: CETIRIZINE HYDROCHLORIDE
  113. CETIRIZINE HYDROCHLORIDE [Suspect]
     Active Substance: CETIRIZINE HYDROCHLORIDE
  114. CETIRIZINE HYDROCHLORIDE [Suspect]
     Active Substance: CETIRIZINE HYDROCHLORIDE
  115. CETIRIZINE HYDROCHLORIDE [Suspect]
     Active Substance: CETIRIZINE HYDROCHLORIDE
  116. CETIRIZINE HYDROCHLORIDE [Suspect]
     Active Substance: CETIRIZINE HYDROCHLORIDE
     Route: 048
  117. CETIRIZINE HYDROCHLORIDE [Suspect]
     Active Substance: CETIRIZINE HYDROCHLORIDE
  118. CETIRIZINE HYDROCHLORIDE [Suspect]
     Active Substance: CETIRIZINE HYDROCHLORIDE
  119. CETIRIZINE HYDROCHLORIDE [Suspect]
     Active Substance: CETIRIZINE HYDROCHLORIDE
  120. CETIRIZINE HYDROCHLORIDE [Suspect]
     Active Substance: CETIRIZINE HYDROCHLORIDE
  121. CETIRIZINE HYDROCHLORIDE [Suspect]
     Active Substance: CETIRIZINE HYDROCHLORIDE
  122. CETIRIZINE HYDROCHLORIDE [Suspect]
     Active Substance: CETIRIZINE HYDROCHLORIDE
  123. CETIRIZINE HYDROCHLORIDE [Suspect]
     Active Substance: CETIRIZINE HYDROCHLORIDE
  124. CETIRIZINE HYDROCHLORIDE [Suspect]
     Active Substance: CETIRIZINE HYDROCHLORIDE
  125. CETIRIZINE HYDROCHLORIDE [Suspect]
     Active Substance: CETIRIZINE HYDROCHLORIDE
     Route: 016
  126. CETIRIZINE HYDROCHLORIDE [Suspect]
     Active Substance: CETIRIZINE HYDROCHLORIDE
  127. CETIRIZINE HYDROCHLORIDE [Suspect]
     Active Substance: CETIRIZINE HYDROCHLORIDE
  128. CETIRIZINE HYDROCHLORIDE [Suspect]
     Active Substance: CETIRIZINE HYDROCHLORIDE
  129. CETIRIZINE HYDROCHLORIDE [Suspect]
     Active Substance: CETIRIZINE HYDROCHLORIDE
  130. CETIRIZINE HYDROCHLORIDE [Suspect]
     Active Substance: CETIRIZINE HYDROCHLORIDE
  131. CETIRIZINE HYDROCHLORIDE [Suspect]
     Active Substance: CETIRIZINE HYDROCHLORIDE
  132. CETIRIZINE HYDROCHLORIDE [Suspect]
     Active Substance: CETIRIZINE HYDROCHLORIDE
     Route: 048
  133. CETIRIZINE HYDROCHLORIDE [Suspect]
     Active Substance: CETIRIZINE HYDROCHLORIDE
     Route: 048
  134. CETIRIZINE HYDROCHLORIDE [Suspect]
     Active Substance: CETIRIZINE HYDROCHLORIDE
     Route: 048
  135. OXYCODONE TEREPHTHALATE [Suspect]
     Active Substance: OXYCODONE TEREPHTHALATE
     Indication: Product used for unknown indication
  136. TRIAMCINOLONE ACETONIDE [Suspect]
     Active Substance: TRIAMCINOLONE ACETONIDE
     Indication: Rheumatoid arthritis
     Route: 014
  137. TOCILIZUMAB [Suspect]
     Active Substance: TOCILIZUMAB
     Indication: Rheumatoid arthritis
     Route: 016
  138. TOCILIZUMAB [Suspect]
     Active Substance: TOCILIZUMAB
  139. TOCILIZUMAB [Suspect]
     Active Substance: TOCILIZUMAB
  140. TOCILIZUMAB [Suspect]
     Active Substance: TOCILIZUMAB
     Route: 058
  141. TOCILIZUMAB [Suspect]
     Active Substance: TOCILIZUMAB
  142. TOCILIZUMAB [Suspect]
     Active Substance: TOCILIZUMAB
     Route: 058
  143. TOCILIZUMAB [Suspect]
     Active Substance: TOCILIZUMAB
  144. CETIRIZINE [Suspect]
     Active Substance: CETIRIZINE HYDROCHLORIDE
     Indication: Rheumatoid arthritis
  145. CETIRIZINE [Suspect]
     Active Substance: CETIRIZINE HYDROCHLORIDE
     Route: 048
  146. USTEKINUMAB [Suspect]
     Active Substance: USTEKINUMAB
     Indication: Product used for unknown indication
     Route: 058
  147. USTEKINUMAB [Suspect]
     Active Substance: USTEKINUMAB
  148. USTEKINUMAB [Suspect]
     Active Substance: USTEKINUMAB
     Route: 058
  149. INFLIXIMAB [Suspect]
     Active Substance: INFLIXIMAB
     Indication: Rheumatoid arthritis
  150. INFLIXIMAB [Suspect]
     Active Substance: INFLIXIMAB
  151. INFLIXIMAB [Suspect]
     Active Substance: INFLIXIMAB
  152. INFLIXIMAB [Suspect]
     Active Substance: INFLIXIMAB
  153. INFLIXIMAB [Suspect]
     Active Substance: INFLIXIMAB
  154. REMICADE [Suspect]
     Active Substance: INFLIXIMAB
     Indication: Rheumatoid arthritis
  155. REMICADE [Suspect]
     Active Substance: INFLIXIMAB
     Route: 058
  156. REMICADE [Suspect]
     Active Substance: INFLIXIMAB
  157. REMICADE [Suspect]
     Active Substance: INFLIXIMAB
     Dosage: 500 MG, QD, INTRAVENOUS BOLUS
  158. REMICADE [Suspect]
     Active Substance: INFLIXIMAB
  159. REMICADE [Suspect]
     Active Substance: INFLIXIMAB
  160. REMICADE [Suspect]
     Active Substance: INFLIXIMAB
     Route: 042
  161. REMICADE [Suspect]
     Active Substance: INFLIXIMAB
  162. REMICADE [Suspect]
     Active Substance: INFLIXIMAB
     Route: 058
  163. PHENYLEPHRINE HYDROCHLORIDE [Suspect]
     Active Substance: PHENYLEPHRINE HYDROCHLORIDE
     Indication: Rheumatoid arthritis
  164. SIRUKUMAB [Suspect]
     Active Substance: SIRUKUMAB
     Indication: Product used for unknown indication
  165. SIRUKUMAB [Suspect]
     Active Substance: SIRUKUMAB
  166. AIMOVIG [Suspect]
     Active Substance: ERENUMAB-AOOE
     Indication: Migraine
  167. STELARA [Suspect]
     Active Substance: USTEKINUMAB
     Indication: Rheumatoid arthritis
  168. STELARA [Suspect]
     Active Substance: USTEKINUMAB
     Route: 058
  169. TRAMADOL HYDROCHLORIDE [Suspect]
     Active Substance: TRAMADOL HYDROCHLORIDE
     Indication: Product used for unknown indication
  170. ALENDRONIC ACID [Suspect]
     Active Substance: ALENDRONIC ACID
     Indication: Rheumatoid arthritis
     Route: 048
  171. ALENDRONIC ACID [Suspect]
     Active Substance: ALENDRONIC ACID
  172. ALENDRONIC ACID [Suspect]
     Active Substance: ALENDRONIC ACID
  173. ALENDRONIC ACID [Suspect]
     Active Substance: ALENDRONIC ACID
  174. ALENDRONIC ACID [Suspect]
     Active Substance: ALENDRONIC ACID
     Route: 048
  175. ALENDRONIC ACID [Suspect]
     Active Substance: ALENDRONIC ACID
     Route: 048
  176. ALENDRONIC ACID [Suspect]
     Active Substance: ALENDRONIC ACID
     Route: 016
  177. ALENDRONIC ACID [Suspect]
     Active Substance: ALENDRONIC ACID
  178. ALENDRONIC ACID [Suspect]
     Active Substance: ALENDRONIC ACID
  179. ENBREL [Suspect]
     Active Substance: ETANERCEPT
     Indication: Rheumatoid arthritis
     Route: 058
  180. ENBREL [Suspect]
     Active Substance: ETANERCEPT
  181. ENBREL [Suspect]
     Active Substance: ETANERCEPT
  182. ENBREL [Suspect]
     Active Substance: ETANERCEPT
     Route: 058
  183. ENBREL [Suspect]
     Active Substance: ETANERCEPT
     Dosage: 10 MG, WE (QW)
  184. ENBREL [Suspect]
     Active Substance: ETANERCEPT
     Dosage: 50 MG, WE (QW)
  185. ENBREL [Suspect]
     Active Substance: ETANERCEPT
     Route: 058
  186. ENBREL [Suspect]
     Active Substance: ETANERCEPT
     Route: 058
  187. ENBREL [Suspect]
     Active Substance: ETANERCEPT
     Route: 058
  188. NAPROXEN SODIUM [Suspect]
     Active Substance: NAPROXEN SODIUM
     Indication: Rheumatoid arthritis
  189. RAMIPRIL [Suspect]
     Active Substance: RAMIPRIL
     Indication: Rheumatoid arthritis
  190. RAMIPRIL [Suspect]
     Active Substance: RAMIPRIL
  191. RAMIPRIL [Suspect]
     Active Substance: RAMIPRIL
  192. CORTISONE ACETATE [Suspect]
     Active Substance: CORTISONE ACETATE
     Indication: Rheumatoid arthritis
  193. CORTISONE ACETATE [Suspect]
     Active Substance: CORTISONE ACETATE
     Route: 048
  194. CORTISONE ACETATE [Suspect]
     Active Substance: CORTISONE ACETATE
  195. DESOXIMETASONE [Suspect]
     Active Substance: DESOXIMETASONE
     Indication: Rheumatoid arthritis
     Route: 048
  196. DESOXIMETASONE [Suspect]
     Active Substance: DESOXIMETASONE
     Route: 048
  197. DESOXIMETASONE [Suspect]
     Active Substance: DESOXIMETASONE
     Route: 048
  198. TOPIRAMATE [Suspect]
     Active Substance: TOPIRAMATE
     Indication: Migraine
     Dosage: 25 MG, QD
  199. TOPIRAMATE [Suspect]
     Active Substance: TOPIRAMATE
     Dosage: 3 MG, QD
  200. TOPIRAMATE [Suspect]
     Active Substance: TOPIRAMATE
  201. TOPIRAMATE [Suspect]
     Active Substance: TOPIRAMATE
  202. DESOXIMETASONE [Suspect]
     Active Substance: DESOXIMETASONE
     Indication: Rheumatoid arthritis
  203. DESOXIMETASONE [Suspect]
     Active Substance: DESOXIMETASONE
     Route: 003
  204. DESOXIMETASONE [Suspect]
     Active Substance: DESOXIMETASONE
  205. DESOXIMETASONE [Suspect]
     Active Substance: DESOXIMETASONE
     Route: 048
  206. DESOXIMETASONE [Suspect]
     Active Substance: DESOXIMETASONE
  207. DESOXIMETASONE [Suspect]
     Active Substance: DESOXIMETASONE
     Route: 048
  208. DESOXIMETASONE [Suspect]
     Active Substance: DESOXIMETASONE
     Route: 058
  209. DESOXIMETASONE [Suspect]
     Active Substance: DESOXIMETASONE
     Route: 048
  210. FLUMETHASONE PIVALATE [Suspect]
     Active Substance: FLUMETHASONE PIVALATE
     Indication: Product used for unknown indication
     Route: 003
  211. FLUMETHASONE PIVALATE [Suspect]
     Active Substance: FLUMETHASONE PIVALATE
  212. MINOCYCLINE [Suspect]
     Active Substance: MINOCYCLINE HYDROCHLORIDE
     Indication: Product used for unknown indication
  213. GOLD SODIUM THIOMALATE [Suspect]
     Active Substance: GOLD SODIUM THIOMALATE
     Indication: Product used for unknown indication
  214. GOLD SODIUM THIOMALATE [Suspect]
     Active Substance: GOLD SODIUM THIOMALATE
     Route: 048
  215. GOLD SODIUM THIOMALATE [Suspect]
     Active Substance: GOLD SODIUM THIOMALATE
  216. HYDROXYCHLOROQUINE SULFATE [Suspect]
     Active Substance: HYDROXYCHLOROQUINE SULFATE
     Indication: Rheumatoid arthritis
     Dosage: 400 MG, QD
  217. HYDROXYCHLOROQUINE SULFATE [Suspect]
     Active Substance: HYDROXYCHLOROQUINE SULFATE
     Route: 048
  218. HYDROXYCHLOROQUINE SULFATE [Suspect]
     Active Substance: HYDROXYCHLOROQUINE SULFATE
     Dosage: 40 MG, QD
  219. HYDROXYCHLOROQUINE SULFATE [Suspect]
     Active Substance: HYDROXYCHLOROQUINE SULFATE
     Route: 048
  220. HYDROXYCHLOROQUINE SULFATE [Suspect]
     Active Substance: HYDROXYCHLOROQUINE SULFATE
  221. HYDROXYCHLOROQUINE SULFATE [Suspect]
     Active Substance: HYDROXYCHLOROQUINE SULFATE
     Route: 005
  222. HYDROXYCHLOROQUINE SULFATE [Suspect]
     Active Substance: HYDROXYCHLOROQUINE SULFATE
     Dosage: 40 MG, QD
  223. HYDROXYCHLOROQUINE SULFATE [Suspect]
     Active Substance: HYDROXYCHLOROQUINE SULFATE
     Dosage: 400 MG, QD
     Route: 048
  224. HYDROXYCHLOROQUINE SULFATE [Suspect]
     Active Substance: HYDROXYCHLOROQUINE SULFATE
     Dosage: 400 MG, QD
  225. HYDROXYCHLOROQUINE SULFATE [Suspect]
     Active Substance: HYDROXYCHLOROQUINE SULFATE
  226. HYDROXYCHLOROQUINE SULFATE [Suspect]
     Active Substance: HYDROXYCHLOROQUINE SULFATE
  227. HYDROXYCHLOROQUINE SULFATE [Suspect]
     Active Substance: HYDROXYCHLOROQUINE SULFATE
  228. SULFASALAZINE [Suspect]
     Active Substance: SULFASALAZINE
     Indication: Rheumatoid arthritis
  229. CHLORHEXIDINE GLUCONATE [Suspect]
     Active Substance: CHLORHEXIDINE GLUCONATE
     Indication: Product used for unknown indication
  230. CHLORHEXIDINE GLUCONATE [Suspect]
     Active Substance: CHLORHEXIDINE GLUCONATE
  231. CHLORHEXIDINE GLUCONATE [Suspect]
     Active Substance: CHLORHEXIDINE GLUCONATE
  232. CERTOLIZUMAB PEGOL [Suspect]
     Active Substance: CERTOLIZUMAB PEGOL
     Indication: Product used for unknown indication
     Route: 058
  233. CERTOLIZUMAB PEGOL [Suspect]
     Active Substance: CERTOLIZUMAB PEGOL
     Route: 058
  234. CERTOLIZUMAB PEGOL [Suspect]
     Active Substance: CERTOLIZUMAB PEGOL
     Route: 058
  235. CERTOLIZUMAB PEGOL [Suspect]
     Active Substance: CERTOLIZUMAB PEGOL
  236. CERTOLIZUMAB PEGOL [Suspect]
     Active Substance: CERTOLIZUMAB PEGOL
     Route: 005
  237. CERTOLIZUMAB PEGOL [Suspect]
     Active Substance: CERTOLIZUMAB PEGOL
  238. CERTOLIZUMAB PEGOL [Suspect]
     Active Substance: CERTOLIZUMAB PEGOL
  239. CERTOLIZUMAB PEGOL [Suspect]
     Active Substance: CERTOLIZUMAB PEGOL
  240. BUTRANS [Suspect]
     Active Substance: BUPRENORPHINE
     Indication: Product used for unknown indication
  241. COSENTYX [Suspect]
     Active Substance: SECUKINUMAB
     Indication: Psoriatic arthropathy
  242. COSENTYX [Suspect]
     Active Substance: SECUKINUMAB
     Indication: Rheumatoid arthritis
  243. COSENTYX [Suspect]
     Active Substance: SECUKINUMAB
  244. COSENTYX [Suspect]
     Active Substance: SECUKINUMAB
     Route: 005
  245. COSENTYX [Suspect]
     Active Substance: SECUKINUMAB
  246. COSENTYX [Suspect]
     Active Substance: SECUKINUMAB
  247. METHOTREXATE [Suspect]
     Active Substance: METHOTREXATE
     Indication: Rheumatoid arthritis
  248. METHOTREXATE [Suspect]
     Active Substance: METHOTREXATE
     Route: 058
  249. METHOTREXATE [Suspect]
     Active Substance: METHOTREXATE
  250. METHOTREXATE [Suspect]
     Active Substance: METHOTREXATE
     Route: 058
  251. METHOTREXATE [Suspect]
     Active Substance: METHOTREXATE
     Route: 048
  252. METHOTREXATE [Suspect]
     Active Substance: METHOTREXATE
  253. METHOTREXATE [Suspect]
     Active Substance: METHOTREXATE
     Route: 048
  254. METHOTREXATE [Suspect]
     Active Substance: METHOTREXATE
  255. METHOTREXATE [Suspect]
     Active Substance: METHOTREXATE
  256. METHOTREXATE [Suspect]
     Active Substance: METHOTREXATE
     Route: 048
  257. METHOTREXATE [Suspect]
     Active Substance: METHOTREXATE
  258. METHOTREXATE [Suspect]
     Active Substance: METHOTREXATE
  259. METHOTREXATE [Suspect]
     Active Substance: METHOTREXATE
     Route: 058
  260. METHOTREXATE [Suspect]
     Active Substance: METHOTREXATE
     Route: 048
  261. METHOTREXATE [Suspect]
     Active Substance: METHOTREXATE
     Route: 013
  262. METHOTREXATE [Suspect]
     Active Substance: METHOTREXATE
     Route: 048
  263. METHOTREXATE [Suspect]
     Active Substance: METHOTREXATE
  264. METHOTREXATE [Suspect]
     Active Substance: METHOTREXATE
     Route: 013
  265. METHOTREXATE [Suspect]
     Active Substance: METHOTREXATE
  266. LEFLUNOMIDE [Suspect]
     Active Substance: LEFLUNOMIDE
     Indication: Rheumatoid arthritis
     Dosage: 10 MG, QD
  267. LEFLUNOMIDE [Suspect]
     Active Substance: LEFLUNOMIDE
  268. LEFLUNOMIDE [Suspect]
     Active Substance: LEFLUNOMIDE
     Dosage: 20 MG, QD
  269. LEFLUNOMIDE [Suspect]
     Active Substance: LEFLUNOMIDE
  270. LEFLUNOMIDE [Suspect]
     Active Substance: LEFLUNOMIDE
     Dosage: 10 MG, QD
  271. LEFLUNOMIDE [Suspect]
     Active Substance: LEFLUNOMIDE
     Route: 048
  272. ADALIMUMAB [Suspect]
     Active Substance: ADALIMUMAB
     Indication: Rheumatoid arthritis
     Route: 058
  273. ADALIMUMAB [Suspect]
     Active Substance: ADALIMUMAB
     Route: 058
  274. ADALIMUMAB [Suspect]
     Active Substance: ADALIMUMAB
     Route: 058
  275. ADALIMUMAB [Suspect]
     Active Substance: ADALIMUMAB
     Route: 058
  276. ADALIMUMAB [Suspect]
     Active Substance: ADALIMUMAB
  277. ADALIMUMAB [Suspect]
     Active Substance: ADALIMUMAB
  278. ADALIMUMAB [Suspect]
     Active Substance: ADALIMUMAB
  279. AZATHIOPRINE SODIUM [Suspect]
     Active Substance: AZATHIOPRINE SODIUM
     Indication: Product used for unknown indication
  280. ERELZI [Suspect]
     Active Substance: ETANERCEPT-SZZS
     Indication: Rheumatoid arthritis
  281. HYDROCORTISONE [Suspect]
     Active Substance: HYDROCORTISONE
     Indication: Product used for unknown indication
  282. METHOTREXATE [Suspect]
     Active Substance: METHOTREXATE
     Indication: Rheumatoid arthritis
  283. METHOTREXATE [Suspect]
     Active Substance: METHOTREXATE
  284. METHOTREXATE [Suspect]
     Active Substance: METHOTREXATE
     Route: 048
  285. METHOTREXATE [Suspect]
     Active Substance: METHOTREXATE
  286. METHOTREXATE [Suspect]
     Active Substance: METHOTREXATE
  287. METHOTREXATE [Suspect]
     Active Substance: METHOTREXATE
  288. METHOTREXATE [Suspect]
     Active Substance: METHOTREXATE
     Route: 048
  289. METHOTREXATE [Suspect]
     Active Substance: METHOTREXATE
     Route: 048
  290. METHOTREXATE [Suspect]
     Active Substance: METHOTREXATE
     Route: 048
  291. METHOTREXATE [Suspect]
     Active Substance: METHOTREXATE
     Route: 048
  292. METHOTREXATE [Suspect]
     Active Substance: METHOTREXATE
     Dosage: 25 MG, WE (QW)
  293. METHOTREXATE [Suspect]
     Active Substance: METHOTREXATE
     Route: 016
  294. METHOTREXATE [Suspect]
     Active Substance: METHOTREXATE
     Route: 058
  295. METHOTREXATE [Suspect]
     Active Substance: METHOTREXATE
     Dosage: UNK
     Route: 048
  296. METHOTREXATE [Suspect]
     Active Substance: METHOTREXATE
     Route: 048
  297. METHOTREXATE [Suspect]
     Active Substance: METHOTREXATE
     Route: 013
  298. METHOTREXATE [Suspect]
     Active Substance: METHOTREXATE
     Route: 048
  299. METHOTREXATE [Suspect]
     Active Substance: METHOTREXATE
     Route: 065
  300. METHOTREXATE [Suspect]
     Active Substance: METHOTREXATE
     Route: 065
  301. METHOTREXATE [Suspect]
     Active Substance: METHOTREXATE
     Route: 013
  302. METHOTREXATE [Suspect]
     Active Substance: METHOTREXATE
     Route: 058
  303. METHOTREXATE [Suspect]
     Active Substance: METHOTREXATE
     Route: 058
  304. METHOTREXATE [Suspect]
     Active Substance: METHOTREXATE
     Route: 048
  305. METHOTREXATE [Suspect]
     Active Substance: METHOTREXATE
     Route: 048
  306. CETIRIZINE [Suspect]
     Active Substance: CETIRIZINE HYDROCHLORIDE
     Indication: Rheumatoid arthritis
     Route: 048
  307. CETIRIZINE [Suspect]
     Active Substance: CETIRIZINE HYDROCHLORIDE
     Route: 048
  308. CETIRIZINE [Suspect]
     Active Substance: CETIRIZINE HYDROCHLORIDE
     Route: 048
  309. CETIRIZINE [Suspect]
     Active Substance: CETIRIZINE HYDROCHLORIDE
  310. MYOCHRYSINE [Suspect]
     Active Substance: GOLD SODIUM THIOMALATE
     Indication: Rheumatoid arthritis
     Route: 030
  311. HUMIRA [Suspect]
     Active Substance: ADALIMUMAB
     Indication: Rheumatoid arthritis
     Route: 058
  312. HUMIRA [Suspect]
     Active Substance: ADALIMUMAB
     Route: 058
  313. HUMIRA [Suspect]
     Active Substance: ADALIMUMAB
     Route: 058
  314. HUMIRA [Suspect]
     Active Substance: ADALIMUMAB
  315. HUMIRA [Suspect]
     Active Substance: ADALIMUMAB
  316. HUMIRA [Suspect]
     Active Substance: ADALIMUMAB
     Route: 058
  317. HUMIRA [Suspect]
     Active Substance: ADALIMUMAB
  318. HUMIRA [Suspect]
     Active Substance: ADALIMUMAB
  319. ACETAMINOPHEN [Suspect]
     Active Substance: ACETAMINOPHEN
     Indication: Rheumatoid arthritis
  320. BERINERT [Suspect]
     Active Substance: HUMAN C1-ESTERASE INHIBITOR
     Indication: Product used for unknown indication
  321. HYDROXYCHLOROQUINE [Suspect]
     Active Substance: HYDROXYCHLOROQUINE
     Indication: Rheumatoid arthritis
     Route: 048
  322. HYDROXYCHLOROQUINE [Suspect]
     Active Substance: HYDROXYCHLOROQUINE
     Dosage: 40 MG, QD
  323. HYDROXYCHLOROQUINE [Suspect]
     Active Substance: HYDROXYCHLOROQUINE
  324. HYDROXYCHLOROQUINE [Suspect]
     Active Substance: HYDROXYCHLOROQUINE
  325. HYDROXYCHLOROQUINE [Suspect]
     Active Substance: HYDROXYCHLOROQUINE
     Route: 058
  326. HYDROXYCHLOROQUINE [Suspect]
     Active Substance: HYDROXYCHLOROQUINE
     Dosage: UNK UNK, QD
     Route: 048
  327. HYDROXYCHLOROQUINE [Suspect]
     Active Substance: HYDROXYCHLOROQUINE
     Dosage: 400 MG, QD
     Route: 048
  328. HYDROXYCHLOROQUINE [Suspect]
     Active Substance: HYDROXYCHLOROQUINE
     Dosage: 400 MG, QD
     Route: 048
  329. HYDROXYCHLOROQUINE [Suspect]
     Active Substance: HYDROXYCHLOROQUINE
     Dosage: 400 MG, QD
     Route: 048
  330. HYDROXYCHLOROQUINE [Suspect]
     Active Substance: HYDROXYCHLOROQUINE
     Dosage: UNK UNK, QD
     Route: 058
  331. HYDROXYCHLOROQUINE [Suspect]
     Active Substance: HYDROXYCHLOROQUINE
     Dosage: 400 MG, QD
     Route: 048
  332. HYDROXYCHLOROQUINE [Suspect]
     Active Substance: HYDROXYCHLOROQUINE
     Dosage: 400 MG, QD
  333. HYDROXYCHLOROQUINE [Suspect]
     Active Substance: HYDROXYCHLOROQUINE
     Dosage: 400 MG, QD
  334. HYDROXYCHLOROQUINE [Suspect]
     Active Substance: HYDROXYCHLOROQUINE
  335. HYDROXYCHLOROQUINE [Suspect]
     Active Substance: HYDROXYCHLOROQUINE
  336. HYDROXYCHLOROQUINE [Suspect]
     Active Substance: HYDROXYCHLOROQUINE
     Route: 016
  337. HYDROXYCHLOROQUINE [Suspect]
     Active Substance: HYDROXYCHLOROQUINE
     Route: 005
  338. HYDROXYCHLOROQUINE [Suspect]
     Active Substance: HYDROXYCHLOROQUINE
     Dosage: 40 MG, QD
     Route: 048
  339. HYDROXYCHLOROQUINE [Suspect]
     Active Substance: HYDROXYCHLOROQUINE
     Dosage: UNK UNK, QD
     Route: 058
  340. HYDROXYCHLOROQUINE [Suspect]
     Active Substance: HYDROXYCHLOROQUINE
     Dosage: UNK UNK, QD
     Route: 048
  341. HYDROXYCHLOROQUINE [Suspect]
     Active Substance: HYDROXYCHLOROQUINE
     Route: 058
  342. HYDROXYCHLOROQUINE [Suspect]
     Active Substance: HYDROXYCHLOROQUINE
  343. HYDROXYCHLOROQUINE [Suspect]
     Active Substance: HYDROXYCHLOROQUINE
     Route: 058
  344. HYDROXYCHLOROQUINE [Suspect]
     Active Substance: HYDROXYCHLOROQUINE
  345. RANITIDINE [Suspect]
     Active Substance: RANITIDINE
     Indication: Product used for unknown indication
  346. GOLIMUMAB [Suspect]
     Active Substance: GOLIMUMAB
     Indication: Rheumatoid arthritis
     Route: 058
  347. GOLIMUMAB [Suspect]
     Active Substance: GOLIMUMAB
     Indication: Prostatic specific antigen
  348. FOSAMAX [Suspect]
     Active Substance: ALENDRONATE SODIUM
     Indication: Rheumatoid arthritis
     Route: 048
  349. FOSAMAX [Suspect]
     Active Substance: ALENDRONATE SODIUM
  350. FOSAMAX [Suspect]
     Active Substance: ALENDRONATE SODIUM
     Route: 005
  351. FOSAMAX [Suspect]
     Active Substance: ALENDRONATE SODIUM
     Route: 016
  352. FOSAMAX [Suspect]
     Active Substance: ALENDRONATE SODIUM
     Route: 058
  353. FOSAMAX [Suspect]
     Active Substance: ALENDRONATE SODIUM
  354. SULFASALAZINE [Suspect]
     Active Substance: SULFASALAZINE
     Indication: Rheumatoid arthritis
     Route: 016
  355. SULFASALAZINE [Suspect]
     Active Substance: SULFASALAZINE
     Route: 058
  356. SULFASALAZINE [Suspect]
     Active Substance: SULFASALAZINE
     Route: 048
  357. SULFASALAZINE [Suspect]
     Active Substance: SULFASALAZINE
     Dosage: 1 G, QD, UNKNOWN
  358. SULFASALAZINE [Suspect]
     Active Substance: SULFASALAZINE
     Dosage: 300 MG, QD,UNKNOWN
  359. SULFASALAZINE [Suspect]
     Active Substance: SULFASALAZINE
     Dosage: 2 G, QD, UNKNOWN
  360. SULFASALAZINE [Suspect]
     Active Substance: SULFASALAZINE
     Route: 048
  361. SULFASALAZINE [Suspect]
     Active Substance: SULFASALAZINE
     Dosage: 4 MG, QD (2 MG, BID)
     Route: 058
  362. SULFASALAZINE [Suspect]
     Active Substance: SULFASALAZINE
     Dosage: 2000 MG, QD (1000 MG, BID)
     Route: 048
  363. SULFASALAZINE [Suspect]
     Active Substance: SULFASALAZINE
     Route: 058
  364. SULFASALAZINE [Suspect]
     Active Substance: SULFASALAZINE
     Route: 058
  365. SULFASALAZINE [Suspect]
     Active Substance: SULFASALAZINE
     Dosage: 2 DF, QD (1 DOSAGE FORM, BID)
     Route: 048
  366. SULFASALAZINE [Suspect]
     Active Substance: SULFASALAZINE
  367. SULFASALAZINE [Suspect]
     Active Substance: SULFASALAZINE
  368. SULFASALAZINE [Suspect]
     Active Substance: SULFASALAZINE
     Route: 048
  369. SULFASALAZINE [Suspect]
     Active Substance: SULFASALAZINE
  370. SULFASALAZINE [Suspect]
     Active Substance: SULFASALAZINE
     Route: 048
  371. SULFASALAZINE [Suspect]
     Active Substance: SULFASALAZINE
     Dosage: UNK UNK, QD
     Route: 048
  372. SULFASALAZINE [Suspect]
     Active Substance: SULFASALAZINE
     Route: 058
  373. SULFASALAZINE [Suspect]
     Active Substance: SULFASALAZINE
  374. SULFASALAZINE [Suspect]
     Active Substance: SULFASALAZINE
     Dosage: 2 G, QD (1 G, BID)
     Route: 058
  375. SULFASALAZINE [Suspect]
     Active Substance: SULFASALAZINE
  376. SULFASALAZINE [Suspect]
     Active Substance: SULFASALAZINE
     Route: 048
  377. SULFASALAZINE [Suspect]
     Active Substance: SULFASALAZINE
     Dosage: 1 G, BID
     Route: 058
  378. SULFASALAZINE [Suspect]
     Active Substance: SULFASALAZINE
  379. SULFASALAZINE [Suspect]
     Active Substance: SULFASALAZINE
     Route: 048
  380. ALENDRONIC ACID [Suspect]
     Active Substance: ALENDRONIC ACID
     Indication: Rheumatoid arthritis
     Route: 005
  381. ALENDRONIC ACID [Suspect]
     Active Substance: ALENDRONIC ACID
     Route: 016
  382. ALENDRONIC ACID [Suspect]
     Active Substance: ALENDRONIC ACID
     Route: 048
  383. ALENDRONIC ACID [Suspect]
     Active Substance: ALENDRONIC ACID
     Route: 048
  384. PREDNISONE [Suspect]
     Active Substance: PREDNISONE
     Indication: Rheumatoid arthritis
     Dosage: 20 MG, QD
     Route: 048
  385. PREDNISONE [Suspect]
     Active Substance: PREDNISONE
     Dosage: 50 MG, QD
     Route: 048
  386. PREDNISONE [Suspect]
     Active Substance: PREDNISONE
  387. PREDNISONE [Suspect]
     Active Substance: PREDNISONE
  388. PREDNISONE [Suspect]
     Active Substance: PREDNISONE
  389. PREDNISONE [Suspect]
     Active Substance: PREDNISONE
     Route: 048
  390. PREDNISONE [Suspect]
     Active Substance: PREDNISONE
     Dosage: UNK UNK, QD
  391. PREDNISONE [Suspect]
     Active Substance: PREDNISONE
     Route: 048
  392. PREDNISONE [Suspect]
     Active Substance: PREDNISONE
  393. PREDNISONE [Suspect]
     Active Substance: PREDNISONE
     Route: 048
  394. PREDNISONE [Suspect]
     Active Substance: PREDNISONE
     Route: 048
  395. PREDNISONE [Suspect]
     Active Substance: PREDNISONE
  396. METHYLPREDNISOLONE SODIUM SUCCINATE [Suspect]
     Active Substance: METHYLPREDNISOLONE SODIUM SUCCINATE
     Indication: Product used for unknown indication
  397. ATOMOXETINE [Suspect]
     Active Substance: ATOMOXETINE
     Indication: Migraine
  398. ATOMOXETINE [Suspect]
     Active Substance: ATOMOXETINE
  399. DESOXIMETASONE [Suspect]
     Active Substance: DESOXIMETASONE
     Indication: Rheumatoid arthritis
     Route: 003
  400. DESOXIMETASONE [Suspect]
     Active Substance: DESOXIMETASONE
     Route: 058
  401. DESOXIMETASONE [Suspect]
     Active Substance: DESOXIMETASONE
     Route: 048
  402. DESOXIMETASONE [Suspect]
     Active Substance: DESOXIMETASONE
     Route: 058
  403. DESOXIMETASONE [Suspect]
     Active Substance: DESOXIMETASONE
     Route: 048
  404. DESOXIMETASONE [Suspect]
     Active Substance: DESOXIMETASONE
  405. DESOXIMETASONE [Suspect]
     Active Substance: DESOXIMETASONE
     Route: 048
  406. DESOXIMETASONE [Suspect]
     Active Substance: DESOXIMETASONE
     Route: 048
  407. DESOXIMETASONE [Suspect]
     Active Substance: DESOXIMETASONE
     Route: 048
  408. DESOXIMETASONE [Suspect]
     Active Substance: DESOXIMETASONE
  409. DESOXIMETASONE [Suspect]
     Active Substance: DESOXIMETASONE
  410. DESOXIMETASONE [Suspect]
     Active Substance: DESOXIMETASONE
  411. DESOXIMETASONE [Suspect]
     Active Substance: DESOXIMETASONE
  412. DESOXIMETASONE [Suspect]
     Active Substance: DESOXIMETASONE
     Route: 048
  413. DESOXIMETASONE [Suspect]
     Active Substance: DESOXIMETASONE
     Route: 048
  414. DESOXIMETASONE [Suspect]
     Active Substance: DESOXIMETASONE
     Route: 058
  415. DESOXIMETASONE [Suspect]
     Active Substance: DESOXIMETASONE
     Route: 058
  416. XELJANZ [Suspect]
     Active Substance: TOFACITINIB CITRATE
     Indication: Rheumatoid arthritis
     Dosage: 10 MG, QD (5 MG, BID)
     Route: 048
  417. XELJANZ [Suspect]
     Active Substance: TOFACITINIB CITRATE
  418. XELJANZ [Suspect]
     Active Substance: TOFACITINIB CITRATE
     Dosage: 20 MG, QD
     Route: 048
  419. XELJANZ [Suspect]
     Active Substance: TOFACITINIB CITRATE
  420. XELJANZ [Suspect]
     Active Substance: TOFACITINIB CITRATE
     Route: 048
  421. XELJANZ [Suspect]
     Active Substance: TOFACITINIB CITRATE
  422. XELJANZ [Suspect]
     Active Substance: TOFACITINIB CITRATE
  423. XELJANZ [Suspect]
     Active Substance: TOFACITINIB CITRATE
  424. GOLD SODIUM THIOMALATE [Suspect]
     Active Substance: GOLD SODIUM THIOMALATE
     Indication: Product used for unknown indication
  425. PSEUDOEPHEDRINE HYDROCHLORIDE [Suspect]
     Active Substance: PSEUDOEPHEDRINE HYDROCHLORIDE
     Indication: Rheumatoid arthritis
  426. PSEUDOEPHEDRINE HYDROCHLORIDE [Suspect]
     Active Substance: PSEUDOEPHEDRINE HYDROCHLORIDE
  427. PSEUDOEPHEDRINE HYDROCHLORIDE [Suspect]
     Active Substance: PSEUDOEPHEDRINE HYDROCHLORIDE
  428. PSEUDOEPHEDRINE HYDROCHLORIDE [Suspect]
     Active Substance: PSEUDOEPHEDRINE HYDROCHLORIDE
  429. CHOLECALCIFEROL [Suspect]
     Active Substance: CHOLECALCIFEROL
     Indication: Product used for unknown indication
  430. APREMILAST [Suspect]
     Active Substance: APREMILAST
     Indication: Rheumatoid arthritis
  431. APREMILAST [Suspect]
     Active Substance: APREMILAST
     Dosage: 6 MG, QD (3 MG, BID)
  432. FLUMETHASONE [Suspect]
     Active Substance: FLUMETHASONE
     Indication: Product used for unknown indication
  433. LAMICTAL [Suspect]
     Active Substance: LAMOTRIGINE
     Indication: Product used for unknown indication
     Route: 048
  434. LAMICTAL [Suspect]
     Active Substance: LAMOTRIGINE
     Route: 048
  435. LAMICTAL [Suspect]
     Active Substance: LAMOTRIGINE
     Route: 048
  436. LAMICTAL [Suspect]
     Active Substance: LAMOTRIGINE
     Route: 048
  437. LAMICTAL [Suspect]
     Active Substance: LAMOTRIGINE
     Route: 048
  438. LAMICTAL [Suspect]
     Active Substance: LAMOTRIGINE
     Route: 048
  439. PREDNISONE [Suspect]
     Active Substance: PREDNISONE
     Indication: Rheumatoid arthritis
  440. PREDNISONE [Suspect]
     Active Substance: PREDNISONE
     Route: 048
  441. PREDNISONE [Suspect]
     Active Substance: PREDNISONE
     Dosage: 20 MG, QD
     Route: 048
  442. PREDNISONE [Suspect]
     Active Substance: PREDNISONE
  443. PREDNISONE [Suspect]
     Active Substance: PREDNISONE
     Route: 048
  444. PREDNISONE [Suspect]
     Active Substance: PREDNISONE
     Route: 048
  445. PREDNISONE [Suspect]
     Active Substance: PREDNISONE
     Route: 048
  446. PREDNISONE [Suspect]
     Active Substance: PREDNISONE
     Dosage: UNK, QD
     Route: 048
  447. PREDNISONE [Suspect]
     Active Substance: PREDNISONE
  448. PREDNISONE [Suspect]
     Active Substance: PREDNISONE
  449. MEGLUMINE [Suspect]
     Active Substance: MEGLUMINE
     Indication: Product used for unknown indication
  450. MINOCYCLINE HYDROCHLORIDE [Suspect]
     Active Substance: MINOCYCLINE HYDROCHLORIDE
     Indication: Product used for unknown indication
  451. METHYLPREDNISOLONE [Suspect]
     Active Substance: METHYLPREDNISOLONE
     Indication: Product used for unknown indication
  452. BOTULINUM TOXIN TYPE A [Suspect]
     Active Substance: BOTULINUM TOXIN TYPE A
     Indication: Product used for unknown indication
  453. CETIRIZINE HYDROCHLORIDE\PSEUDOEPHEDRINE HYDROCHLORIDE [Suspect]
     Active Substance: CETIRIZINE HYDROCHLORIDE\PSEUDOEPHEDRINE HYDROCHLORIDE
     Indication: Rheumatoid arthritis
  454. CETIRIZINE HYDROCHLORIDE\PSEUDOEPHEDRINE HYDROCHLORIDE [Suspect]
     Active Substance: CETIRIZINE HYDROCHLORIDE\PSEUDOEPHEDRINE HYDROCHLORIDE
  455. CETIRIZINE HYDROCHLORIDE\PSEUDOEPHEDRINE HYDROCHLORIDE [Suspect]
     Active Substance: CETIRIZINE HYDROCHLORIDE\PSEUDOEPHEDRINE HYDROCHLORIDE
  456. CETIRIZINE HYDROCHLORIDE\PSEUDOEPHEDRINE HYDROCHLORIDE [Suspect]
     Active Substance: CETIRIZINE HYDROCHLORIDE\PSEUDOEPHEDRINE HYDROCHLORIDE
  457. CETIRIZINE HYDROCHLORIDE\PSEUDOEPHEDRINE HYDROCHLORIDE [Suspect]
     Active Substance: CETIRIZINE HYDROCHLORIDE\PSEUDOEPHEDRINE HYDROCHLORIDE
  458. CETIRIZINE HYDROCHLORIDE\PSEUDOEPHEDRINE HYDROCHLORIDE [Suspect]
     Active Substance: CETIRIZINE HYDROCHLORIDE\PSEUDOEPHEDRINE HYDROCHLORIDE
  459. CETIRIZINE HYDROCHLORIDE\PSEUDOEPHEDRINE HYDROCHLORIDE [Suspect]
     Active Substance: CETIRIZINE HYDROCHLORIDE\PSEUDOEPHEDRINE HYDROCHLORIDE
  460. ARAVA [Suspect]
     Active Substance: LEFLUNOMIDE
     Indication: Rheumatoid arthritis
     Route: 005
  461. ARAVA [Suspect]
     Active Substance: LEFLUNOMIDE
     Dosage: 20 MG, QD
     Route: 048
  462. ARAVA [Suspect]
     Active Substance: LEFLUNOMIDE
  463. ARAVA [Suspect]
     Active Substance: LEFLUNOMIDE
     Route: 048
  464. ARAVA [Suspect]
     Active Substance: LEFLUNOMIDE
     Dosage: 20 MG, QD
     Route: 048
  465. ARAVA [Suspect]
     Active Substance: LEFLUNOMIDE
     Route: 048
  466. ARAVA [Suspect]
     Active Substance: LEFLUNOMIDE
  467. ARAVA [Suspect]
     Active Substance: LEFLUNOMIDE
     Route: 048
  468. ARAVA [Suspect]
     Active Substance: LEFLUNOMIDE
  469. FOLIC ACID [Suspect]
     Active Substance: FOLIC ACID
     Indication: Rheumatoid arthritis
  470. FOLIC ACID [Suspect]
     Active Substance: FOLIC ACID
  471. FOLIC ACID [Suspect]
     Active Substance: FOLIC ACID
  472. FOLIC ACID [Suspect]
     Active Substance: FOLIC ACID
     Route: 048
  473. FOLIC ACID [Suspect]
     Active Substance: FOLIC ACID
  474. FOLIC ACID [Suspect]
     Active Substance: FOLIC ACID
     Route: 048
  475. FOLIC ACID [Suspect]
     Active Substance: FOLIC ACID
  476. FOLIC ACID [Suspect]
     Active Substance: FOLIC ACID
     Route: 048
  477. FOLIC ACID [Suspect]
     Active Substance: FOLIC ACID
  478. FOLIC ACID [Suspect]
     Active Substance: FOLIC ACID
  479. FOLIC ACID [Suspect]
     Active Substance: FOLIC ACID
  480. FOLIC ACID [Suspect]
     Active Substance: FOLIC ACID
     Route: 058
  481. FOLIC ACID [Suspect]
     Active Substance: FOLIC ACID
     Route: 048
  482. FOLIC ACID [Suspect]
     Active Substance: FOLIC ACID
  483. GOLD [Suspect]
     Active Substance: GOLD
     Indication: Product used for unknown indication
  484. NUCALA [Suspect]
     Active Substance: MEPOLIZUMAB
     Indication: Product used for unknown indication
  485. TOFACITINIB [Suspect]
     Active Substance: TOFACITINIB
     Indication: Rheumatoid arthritis
     Dosage: 10 MG, QD (5 MG, BID)
  486. TOFACITINIB [Suspect]
     Active Substance: TOFACITINIB
  487. TOFACITINIB [Suspect]
     Active Substance: TOFACITINIB
  488. NAPROXEN [Suspect]
     Active Substance: NAPROXEN
     Indication: Product used for unknown indication
  489. COSENTYX [Concomitant]
     Active Substance: SECUKINUMAB
     Indication: Product used for unknown indication
  490. ACTEMRA [Suspect]
     Active Substance: TOCILIZUMAB
     Indication: Rheumatoid arthritis
     Route: 058
  491. METFORMIN HYDROCHLORIDE [Suspect]
     Active Substance: METFORMIN HYDROCHLORIDE
     Indication: Product used for unknown indication
  492. TETRACYCLINE HYDROCHLORIDE [Suspect]
     Active Substance: TETRACYCLINE HYDROCHLORIDE
     Indication: Rheumatoid arthritis
  493. PREDNISONE [Suspect]
     Active Substance: PREDNISONE
     Indication: Rheumatoid arthritis

REACTIONS (16)
  - Wound infection [Fatal]
  - Weight increased [Fatal]
  - Off label use [Fatal]
  - Urticaria [Fatal]
  - Peripheral venous disease [Fatal]
  - Wheezing [Fatal]
  - Gait inability [Fatal]
  - Product quality issue [Fatal]
  - Intentional product use issue [Fatal]
  - Paraesthesia [Fatal]
  - Osteoarthritis [Fatal]
  - Obesity [Fatal]
  - Back injury [Fatal]
  - Taste disorder [Fatal]
  - Peripheral swelling [Fatal]
  - Stomatitis [Fatal]
